FAERS Safety Report 19867429 (Version 1)
Quarter: 2021Q3

REPORT INFORMATION
  Report Type: Spontaneous
  Country: US (occurrence: US)
  Receive Date: 20210922
  Receipt Date: 20210922
  Transmission Date: 20211014
  Serious: Yes (Other)
  Sender: FDA-Public Use
  Company Number: US-AUROBINDO-AUR-APL-2021-038854

PATIENT
  Age: 26 Year
  Sex: Male

DRUGS (1)
  1. LISINOPRIL. [Suspect]
     Active Substance: LISINOPRIL
     Indication: SECONDARY HYPERTENSION
     Dosage: UNK
     Route: 065

REACTIONS (4)
  - Myocardial ischaemia [Unknown]
  - Azotaemia [Unknown]
  - Hypertensive emergency [Unknown]
  - Acute kidney injury [Unknown]
